FAERS Safety Report 23799903 (Version 1)
Quarter: 2024Q2

REPORT INFORMATION
  Report Type: Other
  Country: None (occurrence: None)
  Receive Date: 20240430
  Receipt Date: 20240430
  Transmission Date: 20240716
  Serious: Yes (Death)
  Sender: FDA-Public Use
  Company Number: Aprecia Pharmaceuticals-APRE20240864

PATIENT

DRUGS (1)
  1. LEVETIRACETAM [Suspect]
     Active Substance: LEVETIRACETAM
     Indication: Product used for unknown indication
     Dosage: UNKNOWN
     Route: 065

REACTIONS (1)
  - Idiosyncratic drug reaction [Fatal]
